FAERS Safety Report 5768405-4 (Version None)
Quarter: 2008Q2

REPORT INFORMATION
  Report Type: 
  Country: None (occurrence: None)
  Receive Date: 20080612
  Receipt Date: 20080303
  Transmission Date: 20081010
  Serious: No
  Sender: FDA-Public Use
  Company Number: US-ABBOTT-08P-163-0440926-00

PATIENT
  Sex: Female
  Weight: 73.548 kg

DRUGS (4)
  1. HUMIRA [Suspect]
     Indication: PSORIATIC ARTHROPATHY
     Route: 058
     Dates: start: 20060801, end: 20071201
  2. MONTELUKAST SODIUM [Concomitant]
     Indication: HYPERSENSITIVITY
     Route: 048
     Dates: start: 20071001
  3. VALSARTAN [Concomitant]
     Indication: HYPERTENSION
     Route: 048
     Dates: start: 19980101
  4. DYAZIDE [Concomitant]
     Indication: HYPERTENSION
     Route: 048
     Dates: start: 19980101

REACTIONS (1)
  - SINUSITIS [None]
